FAERS Safety Report 16825379 (Version 1)
Quarter: 2019Q3

REPORT INFORMATION
  Report Type: Report from Study
  Country: IT (occurrence: IT)
  Receive Date: 20190919
  Receipt Date: 20190919
  Transmission Date: 20191005
  Serious: Yes (Other)
  Sender: FDA-Public Use
  Company Number: IT-PFIZER INC-2019398180

PATIENT
  Age: 55 Year
  Sex: Male

DRUGS (2)
  1. HALCION [Suspect]
     Active Substance: TRIAZOLAM
     Dosage: 1 DF, 1X/DAY (EVENING)
     Route: 048
  2. HALCION [Suspect]
     Active Substance: TRIAZOLAM
     Dosage: 2 MG, SINGLE
     Route: 048
     Dates: start: 20190620, end: 20190620

REACTIONS (4)
  - Bradyphrenia [Recovering/Resolving]
  - Hypokinesia [Recovering/Resolving]
  - Sopor [Recovering/Resolving]
  - Drug abuse [Recovering/Resolving]

NARRATIVE: CASE EVENT DATE: 20190620
